FAERS Safety Report 7562426-7 (Version None)
Quarter: 2011Q2

REPORT INFORMATION
  Report Type: 
  Country: None (occurrence: None)
  Receive Date: 20110622
  Receipt Date: 20110613
  Transmission Date: 20111010
  Serious: Yes (Hospitalization)
  Sender: FDA-Public Use
  Company Number: US-ASTELLAS-2011US002943

PATIENT

DRUGS (2)
  1. ESTRADIOL [Concomitant]
     Indication: PRODUCT USED FOR UNKNOWN INDICATION
     Dosage: UNK
     Route: 065
  2. VESICARE [Suspect]
     Indication: BLADDER DISORDER
     Dosage: 5 MG, UNKNOWN/D
     Route: 048
     Dates: start: 20110327, end: 20110613

REACTIONS (6)
  - PNEUMONIA [None]
  - DRY EYE [None]
  - NASOPHARYNGITIS [None]
  - COUGH [None]
  - INFLUENZA [None]
  - OROPHARYNGEAL PAIN [None]
